FAERS Safety Report 7555731-1 (Version None)
Quarter: 2011Q2

REPORT INFORMATION
  Report Type: 
  Country: None (occurrence: None)
  Receive Date: 20110617
  Receipt Date: 20110606
  Transmission Date: 20111010
  Serious: Yes (Hospitalization)
  Sender: FDA-Public Use
  Company Number: FR-GENENTECH-319873

PATIENT

DRUGS (17)
  1. CISPLATIN [Concomitant]
     Dosage: 193 MG, UNK
     Dates: start: 20071217
  2. ETOPOSIDE [Concomitant]
     Indication: LYMPHOMA
     Dosage: UNK
     Dates: start: 20041001
  3. RITUXIMAB [Suspect]
     Dosage: UNK
     Route: 042
     Dates: start: 20070801
  4. RITUXIMAB [Suspect]
     Dosage: 750 MG, UNK
     Route: 042
     Dates: start: 20071022
  5. CISPLATIN [Concomitant]
     Dosage: 200 MG, UNK
     Dates: start: 20071022
  6. RITUXIMAB [Suspect]
     Dosage: 750 MG, UNK
     Route: 042
     Dates: start: 20071002
  7. CYTARABINE [Concomitant]
     Dosage: 8000 MG, UNK
     Dates: start: 20071002
  8. RITUXIMAB [Suspect]
     Indication: B-CELL LYMPHOMA
     Dosage: UNK
     Route: 042
     Dates: end: 20040901
  9. CISPLATIN [Concomitant]
     Indication: LYMPHOMA
     Dosage: 200 MG, UNK
     Dates: start: 20071002
  10. CYTARABINE [Concomitant]
     Dosage: 8000 MG, UNK
     Dates: start: 20071022
  11. RITUXIMAB [Suspect]
     Dosage: UNK
     Route: 042
     Dates: start: 20041001
  12. RITUXIMAB [Suspect]
     Dosage: 720 MG, UNK
     Route: 042
     Dates: start: 20071217
  13. CISPLATIN [Concomitant]
     Dosage: 200 MG, UNK
     Dates: start: 20071114
  14. CYTARABINE [Concomitant]
     Dosage: 7800 MG, UNK
     Dates: start: 20071217
  15. CYTARABINE [Concomitant]
     Indication: LYMPHOMA
     Dosage: UNK
     Dates: start: 20041001
  16. CYTARABINE [Concomitant]
     Dosage: 8000 MG, UNK
     Dates: start: 20071114
  17. RITUXIMAB [Suspect]
     Dosage: 750 MG, UNK
     Route: 042
     Dates: start: 20071114

REACTIONS (2)
  - SINUSITIS [None]
  - CHOLECYSTITIS ACUTE [None]
